FAERS Safety Report 6815394-7 (Version None)
Quarter: 2010Q3

REPORT INFORMATION
  Report Type: 
  Country: None (occurrence: None)
  Receive Date: 20100701
  Receipt Date: 20100701
  Transmission Date: 20110219
  Serious: No
  Sender: FDA-Public Use
  Company Number: None

PATIENT
  Sex: Female
  Weight: 119.296 kg

DRUGS (1)
  1. LEVOTHYROXINE SODIUM [Suspect]
     Indication: HYPOTHYROIDISM
     Dosage: 112 MCG ONCE DAILY ORALLY 5 YRS AGO ~
     Route: 048

REACTIONS (4)
  - DIARRHOEA [None]
  - PRURITUS [None]
  - URTICARIA [None]
  - VOMITING [None]
